FAERS Safety Report 24013973 (Version 1)
Quarter: 2024Q2

REPORT INFORMATION
  Report Type: Spontaneous
  Country: FR (occurrence: FR)
  Receive Date: 20240626
  Receipt Date: 20240626
  Transmission Date: 20240715
  Serious: Yes (Hospitalization, Other)
  Sender: FDA-Public Use
  Company Number: None

PATIENT
  Age: 92 Year
  Sex: Female
  Weight: 50 kg

DRUGS (4)
  1. ELIQUIS [Suspect]
     Active Substance: APIXABAN
     Indication: Product used for unknown indication
     Route: 048
     Dates: start: 20240614, end: 20240614
  2. BISOPROLOL FUMARATE [Suspect]
     Active Substance: BISOPROLOL FUMARATE
     Indication: Wrong patient
     Route: 048
     Dates: start: 20240614, end: 20240614
  3. TELMISARTAN [Suspect]
     Active Substance: TELMISARTAN
     Indication: Wrong patient
     Route: 048
     Dates: start: 20240614, end: 20240614
  4. AMIODARONE [Suspect]
     Active Substance: AMIODARONE
     Indication: Wrong patient
     Route: 048
     Dates: start: 20240614, end: 20240614

REACTIONS (4)
  - Intestinal ischaemia [Recovered/Resolved]
  - Hypotension [Recovered/Resolved]
  - Wrong patient [Recovered/Resolved]
  - Hypovolaemic shock [Recovered/Resolved]

NARRATIVE: CASE EVENT DATE: 20240614
